FAERS Safety Report 21312754 (Version 1)
Quarter: 2022Q3

REPORT INFORMATION
  Report Type: Spontaneous
  Country: US (occurrence: None)
  Receive Date: 20220908
  Receipt Date: 20220908
  Transmission Date: 20221027
  Serious: Yes (Hospitalization, Disabling)
  Sender: FDA-Public Use
  Company Number: None

PATIENT
  Age: 58 Year
  Sex: Male
  Weight: 81 kg

DRUGS (10)
  1. LATUDA [Suspect]
     Active Substance: LURASIDONE HYDROCHLORIDE
     Indication: Bipolar I disorder
     Dosage: FREQUENCY : AT BEDTIME;?
     Route: 048
     Dates: start: 20190101, end: 20220501
  2. ALLOPURINOL [Concomitant]
     Active Substance: ALLOPURINOL
  3. LEVOTHYROXINE [Concomitant]
     Active Substance: LEVOTHYROXINE
  4. DULOXETINE [Concomitant]
     Active Substance: DULOXETINE
  5. CAPLYTA [Concomitant]
     Active Substance: LUMATEPERONE
  6. LISINOPRIL [Concomitant]
     Active Substance: LISINOPRIL
  7. FLUTICASONE [Concomitant]
     Active Substance: FLUTICASONE
  8. HYDROXIDE [Concomitant]
  9. ESZOPICLONE [Concomitant]
     Active Substance: ESZOPICLONE
  10. MELATONIN [Concomitant]
     Active Substance: MELATONIN

REACTIONS (3)
  - Anxiety [None]
  - Panic attack [None]
  - Restlessness [None]

NARRATIVE: CASE EVENT DATE: 20200101
